FAERS Safety Report 8066580-2 (Version None)
Quarter: 2012Q1

REPORT INFORMATION
  Report Type: 
  Country: None (occurrence: None)
  Receive Date: 20120124
  Receipt Date: 20120117
  Transmission Date: 20120608
  Serious: Yes (Hospitalization)
  Sender: FDA-Public Use
  Company Number: PHEH2012US001704

PATIENT
  Age: 26 Year
  Sex: Male
  Weight: 72.562 kg

DRUGS (2)
  1. TOBI [Suspect]
     Dosage: 300 MG, BID 28 DAYS ON AND 28 DAYS OFF
     Dates: start: 20111222
  2. PULMOZYME [Concomitant]

REACTIONS (1)
  - UPPER RESPIRATORY TRACT INFECTION [None]
